FAERS Safety Report 5364292-7 (Version None)
Quarter: 2007Q2

REPORT INFORMATION
  Report Type: 
  Country: None (occurrence: None)
  Receive Date: 20070620
  Receipt Date: 20070612
  Transmission Date: 20071010
  Serious: Yes (Hospitalization)
  Sender: FDA-Public Use
  Company Number: US-ABBOTT-96P-163-0062423-00

PATIENT
  Age: 42 Year
  Sex: Male

DRUGS (7)
  1. VALPROIC ACID [Suspect]
     Indication: CONVULSION
     Route: 048
  2. VALPROIC ACID [Suspect]
  3. CARBAMAZEPINE [Concomitant]
     Indication: DRUG USE FOR UNKNOWN INDICATION
  4. FLUPHENAZINE [Concomitant]
     Indication: DRUG USE FOR UNKNOWN INDICATION
  5. PROPRANOLOL [Concomitant]
     Indication: DRUG USE FOR UNKNOWN INDICATION
  6. CHLORPROMAZINE [Concomitant]
     Indication: DRUG USE FOR UNKNOWN INDICATION
  7. LORAZEPAM [Concomitant]
     Indication: DRUG USE FOR UNKNOWN INDICATION

REACTIONS (3)
  - EOSINOPHILIA [None]
  - PLEURAL EFFUSION [None]
  - PNEUMONIA [None]
